FAERS Safety Report 19874670 (Version 1)
Quarter: 2021Q3

REPORT INFORMATION
  Report Type: Spontaneous
  Country: CN (occurrence: CN)
  Receive Date: 20210922
  Receipt Date: 20210922
  Transmission Date: 20211014
  Serious: Yes (Hospitalization, Other)
  Sender: FDA-Public Use
  Company Number: CN-009507513-2109CHN004673

PATIENT
  Age: 83 Year
  Sex: Male
  Weight: 50 kg

DRUGS (10)
  1. TIENAM [Suspect]
     Active Substance: CILASTATIN SODIUM\IMIPENEM
     Indication: PANCREATITIS ACUTE
     Dosage: 0.5 GRAM, TID
     Route: 041
     Dates: start: 20210728, end: 20210813
  2. PIPERACILLIN AND TAZOBACTAM [Suspect]
     Active Substance: PIPERACILLIN SODIUM\TAZOBACTAM SODIUM
     Indication: PANCREATITIS ACUTE
     Dosage: 4.5 GRAM, TID
     Route: 041
     Dates: start: 20210906, end: 20210910
  3. MEROPENEM. [Suspect]
     Active Substance: MEROPENEM
     Indication: PANCREATITIS ACUTE
     Dosage: 1 GRAM, TID
     Route: 041
     Dates: start: 20210822, end: 20210830
  4. CRAVIT [Suspect]
     Active Substance: LEVOFLOXACIN
     Dosage: 0.5 GRAM, QD
     Route: 041
     Dates: start: 20210830, end: 20210904
  5. ROCEPHIN [Suspect]
     Active Substance: CEFTRIAXONE SODIUM
     Indication: PANCREATITIS ACUTE
     Dosage: 2 GRAM, QD
     Route: 041
     Dates: start: 20210726, end: 20210728
  6. CRAVIT [Suspect]
     Active Substance: LEVOFLOXACIN
     Indication: PANCREATITIS ACUTE
     Dosage: UNK
     Dates: start: 20210728, end: 20210813
  7. CRAVIT [Suspect]
     Active Substance: LEVOFLOXACIN
     Dosage: 0.5 GRAM, QD
     Route: 041
     Dates: start: 20210813, end: 20210818
  8. ROCEPHIN [Suspect]
     Active Substance: CEFTRIAXONE SODIUM
     Dosage: 2 GRAM, QD
     Route: 041
     Dates: start: 20210821, end: 20210822
  9. COLCHICINE. [Suspect]
     Active Substance: COLCHICINE
     Indication: GOUT
     Dosage: 0.5 MILLIGRAM, BID
     Route: 048
     Dates: start: 20210814, end: 20210830
  10. ORNIDAZOLE AND SODIUM CHLORIDE [Suspect]
     Active Substance: ORNIDAZOLE
     Indication: PANCREATITIS ACUTE
     Dosage: 0.5 GRAM, BID
     Route: 041
     Dates: start: 20210726, end: 20210728

REACTIONS (3)
  - Pseudomembranous colitis [Recovering/Resolving]
  - Gastrointestinal fungal infection [Recovering/Resolving]
  - Gout [Unknown]

NARRATIVE: CASE EVENT DATE: 20210817
